FAERS Safety Report 16380291 (Version 2)
Quarter: 2019Q2

REPORT INFORMATION
  Report Type: Spontaneous
  Country: PT (occurrence: PT)
  Receive Date: 20190601
  Receipt Date: 20190614
  Transmission Date: 20190711
  Serious: Yes (Life-Threatening, Hospitalization, Congenital Anomaly, Other)
  Sender: FDA-Public Use
  Company Number: PT-AUROBINDO-AUR-APL-2017-12101

PATIENT

DRUGS (5)
  1. LISINOPRIL. [Suspect]
     Active Substance: LISINOPRIL
     Indication: FOETAL EXPOSURE DURING PREGNANCY
  2. LISINOPRIL. [Suspect]
     Active Substance: LISINOPRIL
     Indication: HYPERTENSION
     Dosage: 10 MG, DAILY
     Route: 064
  3. METHYLDOPA. [Concomitant]
     Active Substance: METHYLDOPA
     Indication: HYPERTENSION
     Dosage: 500 MG, DAILY
     Route: 064
  4. METHYLDOPA. [Concomitant]
     Active Substance: METHYLDOPA
     Indication: PRODUCT USED FOR UNKNOWN INDICATION
     Dosage: 50 MILLIGRAM
     Route: 064
  5. METHYLDOPA. [Concomitant]
     Active Substance: METHYLDOPA
     Indication: FOETAL EXPOSURE DURING PREGNANCY

REACTIONS (30)
  - Delayed fontanelle closure [Recovered/Resolved]
  - Blood antidiuretic hormone decreased [Unknown]
  - Weight increased [Not Recovered/Not Resolved]
  - Dysmorphism [Unknown]
  - Anaemia [Recovered/Resolved]
  - Congenital anomaly [Unknown]
  - Anomaly of external ear congenital [Unknown]
  - Atelectasis [Unknown]
  - Foetal exposure during pregnancy [Unknown]
  - Premature baby [Unknown]
  - Weight decrease neonatal [Recovered/Resolved]
  - Polyuria [Unknown]
  - Anuria [Unknown]
  - Retrognathia [Unknown]
  - Microcephaly [Recovered/Resolved]
  - Renal failure [Unknown]
  - Infection [Unknown]
  - Dyspnoea [Recovered/Resolved]
  - Renal failure neonatal [Recovered/Resolved with Sequelae]
  - Cranial sutures widening [Recovered/Resolved]
  - Blood pressure decreased [Unknown]
  - Hypernatraemia [Unknown]
  - Cerebral atrophy [Unknown]
  - Angiotensin converting enzyme inhibitor foetopathy [Unknown]
  - Hypertonia neonatal [Recovered/Resolved]
  - Congenital nose malformation [Unknown]
  - Enuresis [Not Recovered/Not Resolved]
  - Neonatal hypotension [Recovered/Resolved]
  - Polydipsia [Unknown]
  - Atelectasis neonatal [Recovered/Resolved]
